FAERS Safety Report 18112325 (Version 2)
Quarter: 2020Q3

REPORT INFORMATION
  Report Type: Spontaneous
  Country: US (occurrence: US)
  Receive Date: 20200805
  Receipt Date: 20200909
  Transmission Date: 20201103
  Serious: No
  Sender: FDA-Public Use
  Company Number: US-AMGEN-USASP2020121574

PATIENT
  Sex: Female
  Weight: 43 kg

DRUGS (2)
  1. MVASI [Suspect]
     Active Substance: BEVACIZUMAB-AWWB
     Indication: OVARIAN CANCER
     Dosage: 430 MILLIGRAM
     Route: 065
  2. MVASI [Suspect]
     Active Substance: BEVACIZUMAB-AWWB
     Indication: BREAST CANCER
     Dosage: 10 MILLIGRAM/KILOGRAM
     Route: 065

REACTIONS (3)
  - Protein urine present [Unknown]
  - Product use in unapproved indication [Unknown]
  - Surgery [Unknown]

NARRATIVE: CASE EVENT DATE: 20200727
